FAERS Safety Report 17913546 (Version 3)
Quarter: 2020Q3

REPORT INFORMATION
  Report Type: Report from Study
  Country: BR (occurrence: BR)
  Receive Date: 20200618
  Receipt Date: 20200809
  Transmission Date: 20201103
  Serious: Yes (Other)
  Sender: FDA-Public Use
  Company Number: PHHY2018BR005192

PATIENT
  Age: 57 Year
  Sex: Female
  Weight: 99 kg

DRUGS (8)
  1. COSENTYX [Suspect]
     Active Substance: SECUKINUMAB
     Indication: PSORIATIC ARTHROPATHY
     Dosage: 300 MG, QW
     Route: 058
     Dates: start: 20180419
  2. COSENTYX [Suspect]
     Active Substance: SECUKINUMAB
     Dosage: 300 MG, UNKNOWN
     Route: 065
     Dates: start: 20180510
  3. COSENTYX [Suspect]
     Active Substance: SECUKINUMAB
     Dosage: UNK
     Route: 065
     Dates: end: 20190517
  4. COSENTYX [Suspect]
     Active Substance: SECUKINUMAB
     Indication: OSTEOARTHRITIS
     Dosage: 300 MG, UNKNOWN
     Route: 065
     Dates: start: 20180419
  5. COSENTYX [Suspect]
     Active Substance: SECUKINUMAB
     Dosage: 300 MG, UNKNOWN
     Route: 065
     Dates: start: 20180426
  6. COSENTYX [Suspect]
     Active Substance: SECUKINUMAB
     Dosage: 300 MG, QMO
     Route: 058
  7. VENALOT [Concomitant]
     Active Substance: COUMARIN\TROXERUTIN
     Indication: PRODUCT USED FOR UNKNOWN INDICATION
     Dosage: UNK (FOR CIRCULATION)
     Route: 065
  8. COSENTYX [Suspect]
     Active Substance: SECUKINUMAB
     Dosage: 300 MG, UNKNOWN
     Route: 065
     Dates: start: 20180503

REACTIONS (28)
  - Ear pain [Recovered/Resolved]
  - Discomfort [Recovered/Resolved]
  - External ear inflammation [Recovering/Resolving]
  - Influenza [Not Recovered/Not Resolved]
  - Ear pain [Unknown]
  - Pain [Recovered/Resolved]
  - Pharyngitis [Recovered/Resolved]
  - Headache [Recovered/Resolved]
  - Erythema [Recovered/Resolved]
  - Psoriasis [Not Recovered/Not Resolved]
  - Sinusitis [Recovered/Resolved]
  - Hypersensitivity [Unknown]
  - Gastrointestinal infection [Recovered/Resolved]
  - Peripheral swelling [Recovered/Resolved]
  - Influenza [Recovered/Resolved]
  - Respiratory disorder [Unknown]
  - Oropharyngeal pain [Not Recovered/Not Resolved]
  - Erysipelas [Recovering/Resolving]
  - Decreased immune responsiveness [Unknown]
  - Rhinorrhoea [Recovering/Resolving]
  - Illness [Unknown]
  - Throat tightness [Recovering/Resolving]
  - Gait disturbance [Not Recovered/Not Resolved]
  - Suspected COVID-19 [Not Recovered/Not Resolved]
  - Cough [Recovered/Resolved]
  - Pyrexia [Recovered/Resolved]
  - Cough [Recovering/Resolving]
  - Tonsillitis [Not Recovered/Not Resolved]

NARRATIVE: CASE EVENT DATE: 20180505
